FAERS Safety Report 9919668 (Version 2)
Quarter: 2014Q1

REPORT INFORMATION
  Report Type: Report from Study
  Country: US (occurrence: US)
  Receive Date: 20140224
  Receipt Date: 20140313
  Transmission Date: 20141002
  Serious: Yes (Hospitalization)
  Sender: FDA-Public Use
  Company Number: US-SA-2014SA021948

PATIENT
  Age: 68 Year
  Sex: Male

DRUGS (1)
  1. AUBAGIO [Suspect]
     Indication: MULTIPLE SCLEROSIS
     Route: 048
     Dates: start: 20130219, end: 201401

REACTIONS (7)
  - Cerebrovascular accident [Unknown]
  - Asthenia [Unknown]
  - Coordination abnormal [Unknown]
  - Speech disorder [Unknown]
  - Memory impairment [Unknown]
  - Dyspnoea [Unknown]
  - Cerebral haemorrhage [Unknown]
